FAERS Safety Report 16998048 (Version 1)
Quarter: 2019Q4

REPORT INFORMATION
  Report Type: Report from Study
  Country: IT (occurrence: IT)
  Receive Date: 20191106
  Receipt Date: 20191106
  Transmission Date: 20200122
  Serious: Yes (Other)
  Sender: FDA-Public Use
  Company Number: IT-TEVA-2019-IT-1131190

PATIENT
  Age: 70 Year
  Sex: Male
  Weight: 55 kg

DRUGS (2)
  1. ABRAXANE [Suspect]
     Active Substance: PACLITAXEL
     Indication: PANCREATIC NEOPLASM
     Dosage: 125 MG/M2
     Route: 042
     Dates: start: 20190807
  2. GEMCITABINE. [Suspect]
     Active Substance: GEMCITABINE
     Indication: PANCREATIC NEOPLASM
     Dosage: 1000 MG/M2
     Route: 042
     Dates: start: 20190807

REACTIONS (1)
  - Hypokalaemia [Recovered/Resolved]

NARRATIVE: CASE EVENT DATE: 20191001
